FAERS Safety Report 4818998-6 (Version None)
Quarter: 2005Q4

REPORT INFORMATION
  Report Type: 
  Country: None (occurrence: None)
  Receive Date: 20051101
  Receipt Date: 20051101
  Transmission Date: 20060501
  Serious: Yes (Hospitalization)
  Sender: FDA-Public Use
  Company Number: None

PATIENT
  Age: 63 Year
  Sex: Male
  Weight: 134.7183 kg

DRUGS (1)
  1. DOXIL [Suspect]
     Indication: HEPATIC NEOPLASM MALIGNANT
     Dosage: 20MG   Q4WEEKS   IV DRIP
     Route: 041
     Dates: start: 20050301, end: 20050301

REACTIONS (5)
  - ANAPHYLACTOID REACTION [None]
  - BACK PAIN [None]
  - CHEST PAIN [None]
  - HYPOTENSION [None]
  - SHOULDER PAIN [None]
